FAERS Safety Report 17677132 (Version 4)
Quarter: 2020Q2

REPORT INFORMATION
  Report Type: Spontaneous
  Country: US (occurrence: US)
  Receive Date: 20200416
  Receipt Date: 20200529
  Transmission Date: 20200714
  Serious: No
  Sender: FDA-Public Use
  Company Number: US-PFIZER INC-2020155339

PATIENT
  Age: 68 Year
  Sex: Male
  Weight: 73 kg

DRUGS (4)
  1. TESTOSTERONE CIPIONATE [Suspect]
     Active Substance: TESTOSTERONE
     Indication: PERFORMANCE ENHANCING PRODUCT USE
     Dosage: 1 ML, WEEKLY (INJECT 1ML INTRAMUSCULARLY WEEKLY)
     Route: 030
     Dates: start: 20200328
  2. PRESERVISION [Concomitant]
     Active Substance: MINERALS\VITAMINS
     Indication: EYE DISORDER
     Dosage: UNK, 2X/DAY (ONE CAPSULE TWICE A DAY BY MOUTH)
     Route: 048
  3. FISH OIL [Concomitant]
     Active Substance: FISH OIL
     Dosage: 1000 MG, 2X/DAY
     Route: 048
  4. VITAMIN D3 [Concomitant]
     Active Substance: CHOLECALCIFEROL
     Indication: SUPPLEMENTATION THERAPY
     Dosage: 5000 IU, 2X/DAY
     Route: 048

REACTIONS (3)
  - Libido decreased [Unknown]
  - Drug ineffective for unapproved indication [Unknown]
  - Off label use [Unknown]
